FAERS Safety Report 8305982-3 (Version None)
Quarter: 2012Q1

REPORT INFORMATION
  Report Type: 
  Country: None (occurrence: None)
  Receive Date: 20120326
  Receipt Date: 20111230
  Transmission Date: 20120608
  Serious: Yes (Other)
  Sender: FDA-Public Use
  Company Number: PHHY2011US16894

PATIENT
  Age: 75 Year
  Sex: Female

DRUGS (6)
  1. TASIGNA [Suspect]
     Indication: CHRONIC MYELOID LEUKAEMIA
     Dosage: 400 MG, BID, ORAL
     Route: 048
     Dates: start: 20101117, end: 20111201
  2. LIPITOR [Concomitant]
  3. VITAMIN B (NO INGREDIENTS/SUBSTANCES) [Concomitant]
  4. METOPROLOL TARTRATE [Concomitant]
  5. LISINOPRIL [Concomitant]
  6. PREMPRO [Concomitant]

REACTIONS (6)
  - HEPATOMEGALY [None]
  - ALOPECIA [None]
  - NEURALGIA [None]
  - MUSCLE SPASMS [None]
  - IMPAIRED GASTRIC EMPTYING [None]
  - PRURITUS [None]
